FAERS Safety Report 8992718 (Version 1)
Quarter: 2013Q1

REPORT INFORMATION
  Report Type: Spontaneous
  Country: AT (occurrence: AT)
  Receive Date: 20130101
  Receipt Date: 20130101
  Transmission Date: 20140127
  Serious: Yes (Life-Threatening)
  Sender: FDA-Public Use
  Company Number: AT-ROCHE-1175817

PATIENT
  Age: 58 Year
  Sex: Female

DRUGS (4)
  1. ALTEPLASE [Suspect]
     Indication: ISCHAEMIC STROKE
     Route: 042
     Dates: start: 20101220, end: 20101220
  2. AMLODIPINE [Concomitant]
     Indication: HYPERTONIA
     Route: 065
  3. THROMBO ASS [Concomitant]
     Indication: HYPERTONIA
     Route: 065
  4. PANTOLOC [Concomitant]
     Route: 065

REACTIONS (2)
  - Angioedema [Recovered/Resolved]
  - Face oedema [Recovered/Resolved]
